FAERS Safety Report 5125771-0 (Version None)
Quarter: 2006Q4

REPORT INFORMATION
  Report Type: 
  Country: None (occurrence: None)
  Receive Date: 20061010
  Receipt Date: 20061010
  Transmission Date: 20070319
  Serious: Yes (Hospitalization)
  Sender: FDA-Public Use
  Company Number: None

PATIENT
  Age: 20 Year
  Sex: Female
  Weight: 52.6173 kg

DRUGS (2)
  1. PAXIL CR [Suspect]
     Indication: OBSESSIVE-COMPULSIVE DISORDER
     Dosage: 37.5 DAILY PO
     Route: 048
     Dates: start: 20060724, end: 20060907
  2. PAXIL CR [Suspect]
     Indication: PANIC DISORDER
     Dosage: 37.5 DAILY PO
     Route: 048
     Dates: start: 20060724, end: 20060907

REACTIONS (8)
  - DIZZINESS [None]
  - EPISTAXIS [None]
  - HYPOAESTHESIA [None]
  - LOSS OF CONSCIOUSNESS [None]
  - NERVOUS SYSTEM DISORDER [None]
  - PARAESTHESIA [None]
  - PHARMACEUTICAL PRODUCT COMPLAINT [None]
  - VISUAL DISTURBANCE [None]
